FAERS Safety Report 9988810 (Version 3)
Quarter: 2014Q2

REPORT INFORMATION
  Report Type: Spontaneous
  Country: US (occurrence: US)
  Receive Date: 20140310
  Receipt Date: 20140521
  Transmission Date: 20141212
  Serious: No
  Sender: FDA-Public Use
  Company Number: US-TEVA-467315USA

PATIENT
  Age: 32 Year
  Sex: Male

DRUGS (2)
  1. NUVIGIL [Suspect]
     Indication: CIRCADIAN RHYTHM SLEEP DISORDER
  2. SUBOXONE [Concomitant]
     Indication: DRUG ABUSE

REACTIONS (1)
  - Drug ineffective [Recovered/Resolved]
